FAERS Safety Report 13201727 (Version 1)
Quarter: 2017Q1

REPORT INFORMATION
  Report Type: Spontaneous
  Country: US (occurrence: US)
  Receive Date: 20170208
  Receipt Date: 20170208
  Transmission Date: 20170428
  Serious: No
  Sender: FDA-Public Use
  Company Number: US-AMGEN-USASP2016070411

PATIENT

DRUGS (4)
  1. TAXOL [Concomitant]
     Active Substance: PACLITAXEL
     Dosage: UNK
  2. XELODA [Concomitant]
     Active Substance: CAPECITABINE
     Dosage: UNK
  3. NEULASTA [Suspect]
     Active Substance: PEGFILGRASTIM
     Indication: PRODUCT USED FOR UNKNOWN INDICATION
     Dosage: UNK
     Route: 065
  4. CARBOPLATIN. [Concomitant]
     Active Substance: CARBOPLATIN
     Dosage: UNK

REACTIONS (6)
  - Pyrexia [Unknown]
  - Headache [Unknown]
  - Feeling abnormal [Unknown]
  - Breast pain [Unknown]
  - Breast swelling [Unknown]
  - Nasopharyngitis [Unknown]
